FAERS Safety Report 7340578-1 (Version None)
Quarter: 2011Q1

REPORT INFORMATION
  Report Type: 
  Country: None (occurrence: None)
  Receive Date: 20110309
  Receipt Date: 20110224
  Transmission Date: 20110831
  Serious: Yes (Other)
  Sender: FDA-Public Use
  Company Number: PHHY2010MX43387

PATIENT
  Sex: Female

DRUGS (2)
  1. ACLASTA [Suspect]
     Indication: OSTEOPOROSIS
     Dosage: 1 AMPOULE (5 MG/100) PER YEAR
     Route: 042
     Dates: start: 20070701
  2. CALTRATE + D [Concomitant]

REACTIONS (4)
  - THROMBOPHLEBITIS [None]
  - BEDRIDDEN [None]
  - ARTHRITIS [None]
  - THROMBOSIS [None]
